FAERS Safety Report 4456745-0 (Version None)
Quarter: 2004Q3

REPORT INFORMATION
  Report Type: 
  Country: None (occurrence: None)
  Receive Date: 20040917
  Receipt Date: 20040902
  Transmission Date: 20050211
  Serious: Yes (Death, Hospitalization)
  Sender: FDA-Public Use
  Company Number: AZAUS200400083

PATIENT
  Age: 73 Year
  Sex: Male
  Weight: 64 kg

DRUGS (9)
  1. VIDAZA [Suspect]
     Indication: MYELODYSPLASTIC SYNDROME
     Dosage: 75 MG/M2  (130 MG, DAILY X 7 DAYS), SUBCUTANEOUS
     Route: 057
  2. MULTIVITAMIN (MULTIVITAMINS) [Concomitant]
  3. VERAPAMIL [Concomitant]
  4. ZOCOR [Concomitant]
  5. REMICADE [Concomitant]
  6. DEXAMETHASONE [Concomitant]
  7. PROCRIT [Concomitant]
  8. OXYGEN (OXYGEN) (INHALANT) [Concomitant]
  9. THALIDOMIDE (THALIDOMIDE) [Concomitant]

REACTIONS (13)
  - ACUTE RESPIRATORY FAILURE [None]
  - CONSTIPATION [None]
  - DECREASED APPETITE [None]
  - DYSPNOEA [None]
  - HAEMOGLOBIN DECREASED [None]
  - MULTI-ORGAN FAILURE [None]
  - MYOCARDIAL INFARCTION [None]
  - OXYGEN SATURATION DECREASED [None]
  - PULMONARY EMBOLISM [None]
  - PYREXIA [None]
  - RIGHT VENTRICULAR FAILURE [None]
  - SHOCK [None]
  - TACHYPNOEA [None]
